FAERS Safety Report 25025168 (Version 1)
Quarter: 2025Q1

REPORT INFORMATION
  Report Type: Spontaneous
  Country: KW (occurrence: None)
  Receive Date: 20250228
  Receipt Date: 20250228
  Transmission Date: 20250409
  Serious: Yes (Other)
  Sender: INCYTE
  Company Number: KW-002147023-NVSC2025KW032387

PATIENT
  Age: 58 Year

DRUGS (1)
  1. RUXOLITINIB [Suspect]
     Active Substance: RUXOLITINIB
     Indication: Myelofibrosis
     Dosage: 20 MG, BID
     Route: 065

REACTIONS (2)
  - Cardiac failure [Unknown]
  - Splenomegaly [Unknown]
